FAERS Safety Report 13095671 (Version 1)
Quarter: 2017Q1

REPORT INFORMATION
  Report Type: Spontaneous
  Country: US (occurrence: US)
  Receive Date: 20170109
  Receipt Date: 20170109
  Transmission Date: 20170428
  Serious: No
  Sender: FDA-Public Use
  Company Number: US-AUROBINDO-AUR-APU-2016-13147

PATIENT
  Sex: Female

DRUGS (1)
  1. CEPHALEXIN CAPSULES USP 250 MG [Suspect]
     Active Substance: CEPHALEXIN
     Indication: URINARY TRACT INFECTION
     Dosage: 250 MG, UNK
     Route: 065

REACTIONS (2)
  - Product odour abnormal [Unknown]
  - Abdominal discomfort [Unknown]
